FAERS Safety Report 24045204 (Version 2)
Quarter: 2024Q3

REPORT INFORMATION
  Report Type: Spontaneous
  Country: US (occurrence: US)
  Receive Date: 20240703
  Receipt Date: 20240712
  Transmission Date: 20241017
  Serious: Yes (Other)
  Sender: PFIZER
  Company Number: US-PFIZER INC-PV202400085963

PATIENT
  Age: 69 Year
  Sex: Female

DRUGS (14)
  1. METHOTREXATE SODIUM [Suspect]
     Active Substance: METHOTREXATE SODIUM
     Indication: Diffuse large B-cell lymphoma stage III
     Dosage: DOSE-ADJUSTED
     Route: 037
     Dates: end: 201911
  2. METHOTREXATE SODIUM [Suspect]
     Active Substance: METHOTREXATE SODIUM
     Indication: Invasive ductal breast carcinoma
  3. RITUXIMAB [Concomitant]
     Active Substance: RITUXIMAB
     Indication: Diffuse large B-cell lymphoma stage III
     Dosage: DOSE-ADJUSTED
     Dates: end: 201911
  4. RITUXIMAB [Concomitant]
     Active Substance: RITUXIMAB
     Indication: Invasive ductal breast carcinoma
  5. ETOPOSIDE [Concomitant]
     Active Substance: ETOPOSIDE
     Indication: Diffuse large B-cell lymphoma stage III
     Dosage: DOSE-ADJUSTED
     Dates: end: 201911
  6. ETOPOSIDE [Concomitant]
     Active Substance: ETOPOSIDE
     Indication: Invasive ductal breast carcinoma
  7. PREDNISONE [Concomitant]
     Active Substance: PREDNISONE
     Indication: Diffuse large B-cell lymphoma stage III
     Dosage: DOSE-ADJUSTED
     Dates: end: 201911
  8. PREDNISONE [Concomitant]
     Active Substance: PREDNISONE
     Indication: Invasive ductal breast carcinoma
  9. VINCRISTINE [Concomitant]
     Active Substance: VINCRISTINE
     Indication: Diffuse large B-cell lymphoma stage III
     Dosage: DOSE-ADJUSTED
  10. VINCRISTINE [Concomitant]
     Active Substance: VINCRISTINE
     Indication: Invasive ductal breast carcinoma
  11. CYCLOPHOSPHAMIDE [Concomitant]
     Active Substance: CYCLOPHOSPHAMIDE
     Indication: Diffuse large B-cell lymphoma stage III
     Dosage: DOSE-ADJUSTED
     Dates: end: 201911
  12. CYCLOPHOSPHAMIDE [Concomitant]
     Active Substance: CYCLOPHOSPHAMIDE
     Indication: Invasive ductal breast carcinoma
  13. DOXORUBICIN [Concomitant]
     Active Substance: DOXORUBICIN
     Indication: Diffuse large B-cell lymphoma stage III
     Dosage: DOSE-ADJUSTED
     Dates: end: 201911
  14. DOXORUBICIN [Concomitant]
     Active Substance: DOXORUBICIN
     Indication: Invasive ductal breast carcinoma

REACTIONS (1)
  - Radiculopathy [Recovering/Resolving]
